FAERS Safety Report 9450600 (Version 1)
Quarter: 2013Q3

REPORT INFORMATION
  Report Type: Spontaneous
  Country: US (occurrence: US)
  Receive Date: 20130809
  Receipt Date: 20130809
  Transmission Date: 20140515
  Serious: Yes (Hospitalization)
  Sender: FDA-Public Use
  Company Number: US-SP-2013-08206

PATIENT
  Age: 33 Year
  Sex: Male

DRUGS (2)
  1. IMOVAX RABIES [Suspect]
     Indication: IMMUNISATION
     Route: 030
     Dates: start: 20130725, end: 20130725
  2. IMOGAM RABIES-HT [Suspect]
     Indication: IMMUNISATION
     Route: 030
     Dates: start: 20130725, end: 20130725

REACTIONS (2)
  - Rash generalised [Not Recovered/Not Resolved]
  - Swelling [Not Recovered/Not Resolved]
